FAERS Safety Report 5374550-8 (Version None)
Quarter: 2007Q2

REPORT INFORMATION
  Report Type: 
  Country: None (occurrence: None)
  Receive Date: 20070627
  Receipt Date: 20060601
  Transmission Date: 20071010
  Serious: Yes (Hospitalization)
  Sender: FDA-Public Use
  Company Number: 450551

PATIENT
  Age: 84 Year
  Sex: Female
  Weight: 59 kg

DRUGS (5)
  1. XELODA [Suspect]
     Indication: COLON CANCER
     Dosage: 1000 MG 2 PER DAY; ORAL
     Route: 048
     Dates: start: 20060410
  2. EVISTA [Concomitant]
  3. CELEBREX [Concomitant]
  4. MULTIVITAMIN (MULVITAMIN NOS) [Concomitant]
  5. HYDROCHLOROTHIAZIDE [Concomitant]

REACTIONS (1)
  - VOMITING [None]
